FAERS Safety Report 9632409 (Version 1)
Quarter: 2013Q4

REPORT INFORMATION
  Report Type: Spontaneous
  Country: US (occurrence: US)
  Receive Date: 20131018
  Receipt Date: 20131018
  Transmission Date: 20140711
  Serious: No
  Sender: FDA-Public Use
  Company Number: US-PFIZER INC-2013298405

PATIENT
  Age: 51 Year
  Sex: Male
  Weight: 148 kg

DRUGS (4)
  1. LYRICA [Suspect]
     Indication: DIABETIC NEUROPATHY
     Dosage: 100 MG, 3X/DAY
     Route: 048
     Dates: start: 2013
  2. LYRICA [Suspect]
     Dosage: 150 MG, 3X/DAY
     Route: 048
     Dates: start: 201308
  3. CYMBALTA [Concomitant]
     Indication: ARTHRITIS
     Dosage: 30 MG, 1X/DAY
  4. CYMBALTA [Concomitant]
     Indication: BACK PAIN

REACTIONS (1)
  - Abnormal dreams [Unknown]
